FAERS Safety Report 13007599 (Version 1)
Quarter: 2016Q4

REPORT INFORMATION
  Report Type: Spontaneous
  Country: FR (occurrence: FR)
  Receive Date: 20161207
  Receipt Date: 20161207
  Transmission Date: 20170207
  Serious: Yes (Hospitalization, Other)
  Sender: FDA-Public Use
  Company Number: US-ASTRAZENECA-2016SF26633

PATIENT
  Age: 79 Year
  Sex: Male

DRUGS (8)
  1. LASILIX [Suspect]
     Active Substance: FUROSEMIDE
     Dosage: 2.0DF UNKNOWN
     Route: 048
     Dates: start: 20160910
  2. LASILIX [Suspect]
     Active Substance: FUROSEMIDE
     Dosage: 1.0DF UNKNOWN
     Route: 048
     Dates: start: 20160911
  3. ROSUVASTATIN. [Concomitant]
     Active Substance: ROSUVASTATIN
     Indication: PRODUCT USED FOR UNKNOWN INDICATION
     Route: 048
  4. ALLOPURINOL. [Concomitant]
     Active Substance: ALLOPURINOL
     Indication: PRODUCT USED FOR UNKNOWN INDICATION
     Route: 048
     Dates: end: 201609
  5. ELIQUIS [Suspect]
     Active Substance: APIXABAN
     Indication: CEREBROVASCULAR ACCIDENT PROPHYLAXIS
     Route: 048
     Dates: start: 201603, end: 20160914
  6. PLAVIX [Suspect]
     Active Substance: CLOPIDOGREL BISULFATE
     Route: 048
     Dates: end: 201609
  7. CORDARONE [Concomitant]
     Active Substance: AMIODARONE HYDROCHLORIDE
     Indication: PRODUCT USED FOR UNKNOWN INDICATION
     Dosage: UNK
     Route: 065
     Dates: start: 201603
  8. ESOMEPRAZOLE [Suspect]
     Active Substance: ESOMEPRAZOLE
     Route: 048
     Dates: end: 201609

REACTIONS (5)
  - Contraindicated product administered [Unknown]
  - Hyponatraemia [Unknown]
  - Haematuria [Unknown]
  - Tubulointerstitial nephritis [Unknown]
  - Renal failure [Recovering/Resolving]

NARRATIVE: CASE EVENT DATE: 2016
